FAERS Safety Report 19264297 (Version 1)
Quarter: 2021Q2

REPORT INFORMATION
  Report Type: Spontaneous
  Country: US (occurrence: US)
  Receive Date: 20210515
  Receipt Date: 20210515
  Transmission Date: 20210717
  Serious: Yes (Hospitalization)
  Sender: FDA-Public Use
  Company Number: None

PATIENT
  Age: 79 Year
  Sex: Male
  Weight: 86.58 kg

DRUGS (22)
  1. OMEPRAZOLE 20MG [Concomitant]
     Active Substance: OMEPRAZOLE
  2. TROSPIUM CHLORIDE 20MG [Concomitant]
  3. PROCHLORPERAZINE 10MG [Concomitant]
  4. YONSA [Suspect]
     Active Substance: ABIRATERONE ACETATE
     Indication: PROSTATE CANCER
     Route: 048
     Dates: start: 20210203, end: 20210503
  5. LORAZEPAM 0.5MG [Concomitant]
     Active Substance: LORAZEPAM
  6. METOPROLOL TARTRATE 50MG +25MG [Concomitant]
  7. LOVAZA 1GM [Concomitant]
  8. PREDNISONE 5MG, ZOLEDRONIC ACID 4MG/5ML [Concomitant]
  9. VITAMIN D 50MCG [Concomitant]
  10. DIVALPROEX SODIUM ER 500MG [Concomitant]
  11. LISINOPRIL. [Concomitant]
     Active Substance: LISINOPRIL
  12. SIMVASTATIN 40MG [Concomitant]
     Active Substance: SIMVASTATIN
  13. TIMOLOL MALEATE 0.5% [Concomitant]
     Active Substance: TIMOLOL MALEATE
  14. AMLODIPINE [Concomitant]
     Active Substance: AMLODIPINE BESYLATE
  15. ASPIRIN?DIPYRIDAMOLE ER 25?200MG [Concomitant]
     Active Substance: ASPIRIN\DIPYRIDAMOLE
  16. LASIX [Concomitant]
     Active Substance: FUROSEMIDE
  17. LEVOTHYROXINE 50MCG [Concomitant]
     Active Substance: LEVOTHYROXINE
  18. OXYCODONE 20MG [Concomitant]
     Active Substance: OXYCODONE
  19. ATROVENT HFA 42MCG [Concomitant]
  20. TAMSULOSIN 0.4MG [Concomitant]
     Active Substance: TAMSULOSIN
  21. HYDROCODONE/ACETAMINOPHEN 10?325MG [Concomitant]
     Active Substance: ACETAMINOPHEN\HYDROCODONE BITARTRATE
  22. LIDOCAINE?PRILOCAINE [Concomitant]
     Active Substance: LIDOCAINE\PRILOCAINE

REACTIONS (1)
  - Localised infection [None]

NARRATIVE: CASE EVENT DATE: 20210503
